FAERS Safety Report 25423423 (Version 1)
Quarter: 2025Q2

REPORT INFORMATION
  Report Type: Report from Study
  Country: IN (occurrence: IN)
  Receive Date: 20250611
  Receipt Date: 20250611
  Transmission Date: 20250716
  Serious: Yes (Other)
  Sender: NOVARTIS
  Company Number: IN-002147023-NVSC2025IN092308

PATIENT
  Sex: Female

DRUGS (1)
  1. RIBOCICLIB [Suspect]
     Active Substance: RIBOCICLIB
     Indication: Breast cancer metastatic
     Dosage: 400 MG, QD
     Route: 048
     Dates: start: 20250310

REACTIONS (8)
  - Body mass index increased [Unknown]
  - Blood pressure abnormal [Unknown]
  - White blood cell count abnormal [Unknown]
  - Platelet count abnormal [Unknown]
  - Aspartate aminotransferase abnormal [Unknown]
  - Alanine aminotransferase abnormal [Unknown]
  - Vitamin D abnormal [Unknown]
  - Heart rate abnormal [Unknown]
